FAERS Safety Report 24059287 (Version 1)
Quarter: 2024Q3

REPORT INFORMATION
  Report Type: Spontaneous
  Country: US (occurrence: US)
  Receive Date: 20240708
  Receipt Date: 20240708
  Transmission Date: 20241017
  Serious: No
  Sender: LUPIN
  Company Number: US-LUPIN PHARMACEUTICALS INC.-2024-06025

PATIENT

DRUGS (2)
  1. BUPROPION HYDROCHLORIDE [Suspect]
     Active Substance: BUPROPION HYDROCHLORIDE
     Indication: Anhedonia
     Dosage: UNK
     Route: 065
  2. ZOLOFT [Concomitant]
     Active Substance: SERTRALINE HYDROCHLORIDE
     Indication: Depressed mood
     Dosage: UNK
     Route: 065

REACTIONS (14)
  - Anger [Unknown]
  - Agitation [Unknown]
  - Depressed mood [Unknown]
  - Distractibility [Unknown]
  - Laziness [Unknown]
  - Crying [Unknown]
  - Emotional disorder [Unknown]
  - Night sweats [Unknown]
  - Heart rate increased [Unknown]
  - Psychomotor hyperactivity [Unknown]
  - Depression [Unknown]
  - Disturbance in attention [Unknown]
  - Loss of personal independence in daily activities [Unknown]
  - Drug ineffective for unapproved indication [Unknown]
